FAERS Safety Report 11700175 (Version 1)
Quarter: 2015Q4

REPORT INFORMATION
  Report Type: Spontaneous
  Country: US (occurrence: None)
  Receive Date: 20151104
  Receipt Date: 20151104
  Transmission Date: 20160304
  Serious: Yes (Disabling)
  Sender: FDA-Public Use
  Company Number: None

PATIENT
  Age: 83 Year
  Sex: Male
  Weight: 102.06 kg

DRUGS (4)
  1. LISINOPRIL-25 [Concomitant]
  2. PREDNISONE 5MG [Suspect]
     Active Substance: PREDNISONE
     Indication: PHARYNGEAL OEDEMA
     Route: 048
     Dates: start: 20151014, end: 20151015
  3. PRESERVISION AREDS 2 [Concomitant]
  4. HYDROCHLORISIDE [Concomitant]

REACTIONS (5)
  - Dyspnoea [None]
  - Paralysis [None]
  - Musculoskeletal pain [None]
  - Pain in extremity [None]
  - Peripheral swelling [None]

NARRATIVE: CASE EVENT DATE: 20151014
